FAERS Safety Report 4663501-7 (Version None)
Quarter: 2005Q2

REPORT INFORMATION
  Report Type: 
  Country: None (occurrence: None)
  Receive Date: 20050517
  Receipt Date: 20050510
  Transmission Date: 20051028
  Serious: Yes (Other)
  Sender: FDA-Public Use
  Company Number: 2005-0008286

PATIENT
  Age: 7 Year
  Sex: Male

DRUGS (5)
  1. ZIAGEN [Suspect]
     Indication: HIV INFECTION
     Dosage: 300MG PER DAY
     Route: 048
     Dates: start: 20030124
  2. VIREAD [Suspect]
     Indication: HIV INFECTION
     Dosage: 300MG PER DAY
     Route: 048
     Dates: start: 20030124
  3. VIDEX [Concomitant]
     Indication: HIV INFECTION
     Dosage: 200MG PER DAY
     Route: 065
     Dates: start: 20030124
  4. SUSTIVA [Concomitant]
     Dates: start: 20030101
  5. TENOFOVIR [Concomitant]
     Dates: start: 20030101

REACTIONS (4)
  - BONE MARROW DEPRESSION [None]
  - BONE MARROW NECROSIS [None]
  - CD4 LYMPHOCYTES DECREASED [None]
  - NECROSIS [None]
